FAERS Safety Report 8829203 (Version 1)
Quarter: 2012Q4

REPORT INFORMATION
  Report Type: Spontaneous
  Country: US (occurrence: None)
  Receive Date: 20121005
  Receipt Date: 20121005
  Transmission Date: 20130627
  Serious: No
  Sender: FDA-Public Use
  Company Number: None

PATIENT
  Age: 55 Year
  Sex: Female
  Weight: 86.18 kg

DRUGS (2)
  1. ATELVIA [Suspect]
     Dosage: 1 per week
     Dates: start: 20120807
  2. ATELVIA [Suspect]
     Dates: start: 20120814

REACTIONS (6)
  - Arthralgia [None]
  - Pain in extremity [None]
  - Gait disturbance [None]
  - Joint swelling [None]
  - Insomnia [None]
  - Weight bearing difficulty [None]
